FAERS Safety Report 21310170 (Version 1)
Quarter: 2022Q3

REPORT INFORMATION
  Report Type: Spontaneous
  Country: US (occurrence: US)
  Receive Date: 20220909
  Receipt Date: 20220909
  Transmission Date: 20221027
  Serious: No
  Sender: FDA-Public Use
  Company Number: US-VIIV HEALTHCARE LIMITED-US2022AMR127341

PATIENT
  Sex: Male

DRUGS (4)
  1. VOCABRIA [Suspect]
     Active Substance: CABOTEGRAVIR SODIUM
     Indication: Prophylaxis against HIV infection
     Dosage: UNK UNK, QD
     Route: 048
  2. CABOTEGRAVIR [Suspect]
     Active Substance: CABOTEGRAVIR
     Indication: Prophylaxis against HIV infection
     Dosage: UNK
     Dates: start: 2017
  3. CABOTEGRAVIR [Suspect]
     Active Substance: CABOTEGRAVIR
  4. CABOTEGRAVIR [Suspect]
     Active Substance: CABOTEGRAVIR

REACTIONS (2)
  - Product use issue [Unknown]
  - Treatment noncompliance [Unknown]
